FAERS Safety Report 25260331 (Version 1)
Quarter: 2025Q2

REPORT INFORMATION
  Report Type: Spontaneous
  Country: FR (occurrence: FR)
  Receive Date: 20250501
  Receipt Date: 20250501
  Transmission Date: 20250717
  Serious: Yes (Other)
  Sender: VERTEX
  Company Number: None

PATIENT
  Age: 4 Year
  Sex: Female
  Weight: 21 kg

DRUGS (2)
  1. ELEXACAFTOR\IVACAFTOR\TEZACAFTOR [Suspect]
     Active Substance: ELEXACAFTOR\IVACAFTOR\TEZACAFTOR
     Indication: Cystic fibrosis
     Dosage: (75 MG IVACAFTOR/ 50 MG TEZACAFTOR/ 100 MG ELEXACAFTOR)
     Route: 048
     Dates: start: 20231206
  2. KALYDECO [Suspect]
     Active Substance: IVACAFTOR
     Indication: Cystic fibrosis
     Dosage: 75 MG IVACAFTOR
     Route: 048
     Dates: start: 20231206

REACTIONS (2)
  - Abnormal weight gain [Unknown]
  - Hyperphagia [Unknown]

NARRATIVE: CASE EVENT DATE: 20250114
